FAERS Safety Report 9357366 (Version 1)
Quarter: 2013Q2

REPORT INFORMATION
  Report Type: Report from Study
  Country: CA (occurrence: CA)
  Receive Date: 20130620
  Receipt Date: 20130620
  Transmission Date: 20140414
  Serious: Yes (Other)
  Sender: FDA-Public Use
  Company Number: CA-JNJFOC-20130609936

PATIENT
  Age: 25 Year
  Sex: Male

DRUGS (3)
  1. REMICADE [Suspect]
     Indication: CROHN^S DISEASE
     Route: 042
     Dates: start: 2009
  2. NABILONE [Concomitant]
     Route: 065
  3. TYLENOL NO. 3 [Concomitant]
     Route: 065

REACTIONS (3)
  - Guillain-Barre syndrome [Unknown]
  - Coccydynia [Not Recovered/Not Resolved]
  - Intervertebral disc protrusion [Unknown]
